FAERS Safety Report 9928574 (Version 2)
Quarter: 2014Q1

REPORT INFORMATION
  Report Type: Spontaneous
  Country: GB (occurrence: None)
  Receive Date: 20140225
  Receipt Date: 20140306
  Transmission Date: 20141002
  Serious: Yes (Other)
  Sender: FDA-Public Use
  Company Number: GB-014762

PATIENT
  Age: 41 Year
  Sex: Female

DRUGS (2)
  1. MENOPUR [Suspect]
     Indication: INFERTILITY
     Dosage: 450 IU 4 DOSES SUBCUTANEOUS?
     Route: 058
     Dates: start: 20131125, end: 20131128
  2. CLEXANE [Concomitant]

REACTIONS (4)
  - Urticaria [None]
  - Pruritus [None]
  - Pharyngeal oedema [None]
  - Dyspnoea [None]
